FAERS Safety Report 12706188 (Version 2)
Quarter: 2016Q3

REPORT INFORMATION
  Report Type: Spontaneous
  Country: US (occurrence: US)
  Receive Date: 20160901
  Receipt Date: 20160901
  Transmission Date: 20161109
  Serious: No
  Sender: FDA-Public Use
  Company Number: US-JAZZ-2016-US-008164

PATIENT
  Sex: Male

DRUGS (23)
  1. XYREM [Suspect]
     Active Substance: SODIUM OXYBATE
     Indication: SLEEP DISORDER
     Dosage: 3 G, BID
     Route: 048
     Dates: start: 201004, end: 201005
  2. LYRICA [Concomitant]
     Active Substance: PREGABALIN
  3. ADDERALL [Concomitant]
     Active Substance: AMPHETAMINE ASPARTATE\AMPHETAMINE SULFATE\DEXTROAMPHETAMINE SACCHARATE\DEXTROAMPHETAMINE SULFATE
  4. ASPIRIN. [Concomitant]
     Active Substance: ASPIRIN
  5. FIBERCON [Concomitant]
     Active Substance: CALCIUM POLYCARBOPHIL
  6. VITAMIN C [Concomitant]
     Active Substance: ASCORBIC ACID
  7. TERBINAFINE HCL [Concomitant]
     Active Substance: TERBINAFINE HYDROCHLORIDE
  8. CARBAMAZEPINE. [Concomitant]
     Active Substance: CARBAMAZEPINE
  9. LISINOPRIL. [Concomitant]
     Active Substance: LISINOPRIL
  10. INVOKAMET [Concomitant]
     Active Substance: CANAGLIFLOZIN\METFORMIN HYDROCHLORIDE
  11. VICTOZA [Concomitant]
     Active Substance: LIRAGLUTIDE
  12. STOOL SOFTENER [Concomitant]
     Active Substance: DOCUSATE CALCIUM
  13. MELATONIN [Concomitant]
     Active Substance: MELATONIN
  14. MENTAX [Concomitant]
     Active Substance: BUTENAFINE HYDROCHLORIDE
  15. GABAPENTIN. [Concomitant]
     Active Substance: GABAPENTIN
  16. FISH OIL [Concomitant]
     Active Substance: FISH OIL
  17. LANTUS [Concomitant]
     Active Substance: INSULIN GLARGINE
  18. METFORMIN [Concomitant]
     Active Substance: METFORMIN HYDROCHLORIDE
  19. MUCINEX [Concomitant]
     Active Substance: GUAIFENESIN
  20. LYRICA [Concomitant]
     Active Substance: PREGABALIN
  21. OXYCODONE HYDROCHLORIDE. [Concomitant]
     Active Substance: OXYCODONE HYDROCHLORIDE
  22. XYREM [Suspect]
     Active Substance: SODIUM OXYBATE
     Dosage: 4.5 G, BID
     Route: 048
     Dates: start: 201005
  23. NUCYNTA [Concomitant]
     Active Substance: TAPENTADOL HYDROCHLORIDE

REACTIONS (1)
  - Insomnia [Unknown]
